FAERS Safety Report 6056889-6 (Version None)
Quarter: 2009Q1

REPORT INFORMATION
  Report Type: 
  Country: None (occurrence: None)
  Receive Date: 20090129
  Receipt Date: 20090119
  Transmission Date: 20090719
  Serious: Yes (Life-Threatening, Hospitalization)
  Sender: FDA-Public Use
  Company Number: B0554865A

PATIENT
  Age: 40 Year
  Sex: Female

DRUGS (7)
  1. LAMICTAL [Suspect]
     Indication: DEPRESSION
     Dosage: 30TAB PER DAY
     Route: 048
     Dates: start: 20081114, end: 20081114
  2. TERALITHE [Suspect]
     Dosage: 60TAB PER DAY
     Route: 048
     Dates: start: 20081114, end: 20081114
  3. RIVOTRIL [Suspect]
     Dosage: 28TAB PER DAY
     Route: 048
     Dates: start: 20081114, end: 20081114
  4. ZOLPIDEM [Suspect]
     Dosage: 30TAB PER DAY
     Route: 048
     Dates: start: 20081114, end: 20081114
  5. ATHYMIL [Concomitant]
     Dosage: 50MG PER DAY
     Route: 048
  6. SEROPRAM [Concomitant]
     Route: 048
  7. LEVOTHYROX [Concomitant]
     Indication: HYPOTHYROIDISM
     Route: 048

REACTIONS (7)
  - DISTURBANCE IN ATTENTION [None]
  - DYSKINESIA [None]
  - EXTRAPYRAMIDAL DISORDER [None]
  - MULTIPLE DRUG OVERDOSE INTENTIONAL [None]
  - MYDRIASIS [None]
  - PHLEBOTOMY [None]
  - SUICIDE ATTEMPT [None]
